FAERS Safety Report 13073244 (Version 2)
Quarter: 2017Q2

REPORT INFORMATION
  Report Type: Spontaneous
  Country: US (occurrence: US)
  Receive Date: 20161229
  Receipt Date: 20170601
  Transmission Date: 20170830
  Serious: Yes (Other)
  Sender: FDA-Public Use
  Company Number: US-TEVA-724371ACC

PATIENT
  Age: 32 Year
  Sex: Female
  Weight: 60.84 kg

DRUGS (3)
  1. PARAGARD T 380A [Suspect]
     Active Substance: COPPER
     Indication: CONTRACEPTION
     Dates: start: 20160505, end: 20161219
  2. PRENATAL VITAMIN [Concomitant]
     Active Substance: VITAMINS
     Indication: BREAST FEEDING
     Dates: start: 20150701
  3. PARAGARD T 380A [Suspect]
     Active Substance: COPPER
     Dates: start: 20170519

REACTIONS (4)
  - Abdominal pain [Unknown]
  - Embedded device [Recovered/Resolved]
  - Device dislocation [Recovered/Resolved]
  - Exposure during breast feeding [Unknown]

NARRATIVE: CASE EVENT DATE: 20161211
